FAERS Safety Report 11199893 (Version 2)
Quarter: 2015Q3

REPORT INFORMATION
  Report Type: Spontaneous
  Country: FI (occurrence: FI)
  Receive Date: 20150618
  Receipt Date: 20150722
  Transmission Date: 20151125
  Serious: Yes (Other)
  Sender: FDA-Public Use
  Company Number: FI-TEVA-568502ISR

PATIENT
  Sex: Female

DRUGS (5)
  1. IMOVANE [Concomitant]
     Active Substance: ZOPICLONE
     Route: 048
  2. AMOXIN COMP 500 MG [Suspect]
     Active Substance: AMOXICILLIN\CLAVULANATE POTASSIUM
     Route: 048
     Dates: start: 2014, end: 201504
  3. MEDICATION FOR ATHMA [Concomitant]
  4. ZELDOX 20 MG [Concomitant]
     Dosage: 10 MILLIGRAM DAILY;
     Route: 048
  5. MELATONIN [Concomitant]
     Active Substance: MELATONIN
     Route: 048

REACTIONS (5)
  - Malabsorption [Recovered/Resolved]
  - Psychotic disorder [Unknown]
  - Diarrhoea [Recovered/Resolved]
  - Abdominal discomfort [Recovered/Resolved]
  - Impetigo [Not Recovered/Not Resolved]

NARRATIVE: CASE EVENT DATE: 2014
